FAERS Safety Report 18169228 (Version 3)
Quarter: 2020Q4

REPORT INFORMATION
  Report Type: Report from Study
  Country: US (occurrence: US)
  Receive Date: 20200818
  Receipt Date: 20201026
  Transmission Date: 20210113
  Serious: Yes (Hospitalization)
  Sender: FDA-Public Use
  Company Number: US-ROCHE-2655147

PATIENT
  Age: 45 Year
  Sex: Male
  Weight: 104.15 kg

DRUGS (11)
  1. GABAPENTINE [Concomitant]
     Active Substance: GABAPENTIN
     Indication: PAIN IN EXTREMITY
     Dosage: 2 AT BEDTIME
     Route: 048
     Dates: start: 20191212
  2. OXYCODONE HYDROCHLORIDE. [Concomitant]
     Active Substance: OXYCODONE HYDROCHLORIDE
     Indication: PAIN
     Dates: start: 20161019, end: 20161027
  3. CC-122 [Suspect]
     Active Substance: AVADOMIDE
     Indication: B-CELL LYMPHOMA
     Route: 048
     Dates: start: 20200723, end: 20200723
  4. OXYBUTYNIN. [Concomitant]
     Active Substance: OXYBUTYNIN CHLORIDE
     Indication: HYPERHIDROSIS
     Dosage: 1/2 IN AM AND 1/2 IN PM
     Route: 065
     Dates: start: 20180712
  5. RITUXIMAB. [Suspect]
     Active Substance: RITUXIMAB
     Indication: DIFFUSE LARGE B-CELL LYMPHOMA
     Route: 042
     Dates: start: 20161019, end: 20180726
  6. CC-122 [Suspect]
     Active Substance: AVADOMIDE
     Route: 048
     Dates: start: 20200824
  7. CC-122 [Suspect]
     Active Substance: AVADOMIDE
     Indication: DIFFUSE LARGE B-CELL LYMPHOMA
     Dosage: 28 IN 28 DAY
     Route: 048
     Dates: start: 20161019
  8. RITUXIMAB. [Suspect]
     Active Substance: RITUXIMAB
     Indication: B-CELL LYMPHOMA
  9. ALLEGRA [Concomitant]
     Active Substance: FEXOFENADINE HYDROCHLORIDE
     Indication: MULTIPLE ALLERGIES
     Route: 048
     Dates: start: 20180917
  10. GABAPENTINE [Concomitant]
     Active Substance: GABAPENTIN
     Indication: HYPOAESTHESIA
     Dosage: 2 AT BEDTIME
     Route: 048
     Dates: start: 20180823, end: 20191212
  11. OXYCODONE HYDROCHLORIDE. [Concomitant]
     Active Substance: OXYCODONE HYDROCHLORIDE
     Dosage: 10-20 MG
     Route: 048
     Dates: start: 20170706

REACTIONS (1)
  - COVID-19 pneumonia [Recovered/Resolved]

NARRATIVE: CASE EVENT DATE: 20200803
